FAERS Safety Report 7450305-5 (Version None)
Quarter: 2011Q2

REPORT INFORMATION
  Report Type: 
  Country: None (occurrence: None)
  Receive Date: 20110422
  Receipt Date: 20110415
  Transmission Date: 20111010
  Serious: Yes (Death, Life-Threatening)
  Sender: FDA-Public Use
  Company Number: OMPQ-PR-1104S-0352

PATIENT
  Age: 5 Day
  Sex: Male
  Weight: 0.895 kg

DRUGS (1)
  1. OMNIPAQUE 70 [Suspect]
     Indication: CENTRAL VENOUS CATHETERISATION
     Dosage: 1 ML DILUTED IN 1 ML NORMAL SALINE, SINGLE DOSE, INTRAVENOUS
     Route: 042
     Dates: start: 20110411, end: 20110411

REACTIONS (4)
  - SHOCK [None]
  - CARDIO-RESPIRATORY ARREST NEONATAL [None]
  - PRODUCT QUALITY ISSUE [None]
  - NO THERAPEUTIC RESPONSE [None]
